FAERS Safety Report 6722016-2 (Version None)
Quarter: 2010Q2

REPORT INFORMATION
  Report Type: 
  Country: None (occurrence: None)
  Receive Date: 20100512
  Receipt Date: 20100430
  Transmission Date: 20101027
  Serious: Yes (Other)
  Sender: FDA-Public Use
  Company Number: GB-SOLVAY-00210002080

PATIENT
  Age: 68 Year
  Sex: Female

DRUGS (7)
  1. EZETROL [Suspect]
     Indication: PROPHYLAXIS
     Dosage: DAILY DOSE: 10 MILLIGRAM(S)
     Route: 065
     Dates: start: 20080130, end: 20090901
  2. AMIAS [Suspect]
     Indication: HYPERTENSION
     Dosage: DAILY DOSE: 4 MILLIGRAM(S)
     Route: 048
     Dates: start: 20060123, end: 20090901
  3. PERINDOPRIL 8 MG NOS TABLET [Suspect]
     Indication: HYPERTENSION
     Dosage: DAILY DOSE: 8 MILLIGRAM(S)
     Route: 048
     Dates: start: 20050718, end: 20090901
  4. BENDROFLUMETHIAZIDE [Concomitant]
     Indication: HYPERTENSION
     Dosage: DAILY DOSE:  UNKNOWN, 2.5 GRAM
     Route: 065
     Dates: start: 20050411
  5. LEVOTHYROXINE SODIUM [Concomitant]
     Indication: HYPOTHYROIDISM
     Dosage: DAILY DOSE:  UNKNOWN, 50 MICROGRAM
     Route: 065
     Dates: start: 20050411
  6. ASPIRIN [Concomitant]
     Indication: PROPHYLAXIS
     Dosage: DAILY DOSE:  UNKNOWN, 75 GRAM
     Route: 065
     Dates: start: 20051028, end: 20090901
  7. URSODIOL [Concomitant]
     Indication: BILIARY CIRRHOSIS PRIMARY
     Dosage: DAILY DOSE: 750 GRAM(S)
     Route: 065
     Dates: start: 20080330, end: 20090720

REACTIONS (11)
  - AGEUSIA [None]
  - ANOSMIA [None]
  - BILIARY CIRRHOSIS PRIMARY [None]
  - BULBAR PALSY [None]
  - DRY EYE [None]
  - DYSPHAGIA [None]
  - GLOSSODYNIA [None]
  - LIP SWELLING [None]
  - SKIN FISSURES [None]
  - SPEECH DISORDER [None]
  - SWOLLEN TONGUE [None]
